FAERS Safety Report 13961671 (Version 2)
Quarter: 2017Q4

REPORT INFORMATION
  Report Type: Spontaneous
  Country: GB (occurrence: GB)
  Receive Date: 20170912
  Receipt Date: 20171012
  Transmission Date: 20180320
  Serious: Yes (Hospitalization)
  Sender: FDA-Public Use
  Company Number: GB-VERTEX PHARMACEUTICALS-2017-004876

PATIENT
  Age: 15 Year
  Sex: Male

DRUGS (9)
  1. KALYDECO [Suspect]
     Active Substance: IVACAFTOR
     Indication: CYSTIC FIBROSIS
     Dosage: 150 MG, BID
     Route: 048
     Dates: start: 20150814
  2. IRON [Concomitant]
     Active Substance: IRON
  3. COLOMYCIN                          /00013203/ [Concomitant]
     Active Substance: COLISTIN
     Route: 055
  4. PULMOZYME [Concomitant]
     Active Substance: DORNASE ALFA
  5. OMEPRAZOLE. [Concomitant]
     Active Substance: OMEPRAZOLE
  6. VITAMIN K [Concomitant]
     Active Substance: PHYTONADIONE
  7. CREON [Concomitant]
     Active Substance: PANCRELIPASE AMYLASE\PANCRELIPASE LIPASE\PANCRELIPASE PROTEASE
  8. HYPERTONIC SALINE SOLUTION [Concomitant]
     Active Substance: SODIUM CHLORIDE
  9. VITAMIN E                          /00110501/ [Concomitant]
     Active Substance: TOCOPHEROL

REACTIONS (1)
  - Gastroenteritis viral [Recovered/Resolved]

NARRATIVE: CASE EVENT DATE: 201709
